FAERS Safety Report 20340498 (Version 1)
Quarter: 2022Q1

REPORT INFORMATION
  Report Type: Spontaneous
  Country: CA (occurrence: None)
  Receive Date: 20220117
  Receipt Date: 20220117
  Transmission Date: 20220424
  Serious: Yes (Hospitalization, Other)
  Sender: FDA-Public Use
  Company Number: CA-PFIZER INC-202200047034

PATIENT
  Age: 31 Year
  Sex: Male

DRUGS (1)
  1. METHOTREXATE [Suspect]
     Active Substance: METHOTREXATE
     Indication: Product used for unknown indication
     Route: 065
     Dates: start: 202103, end: 202111

REACTIONS (9)
  - Crohn^s disease [Recovering/Resolving]
  - Disease progression [Recovering/Resolving]
  - Drug intolerance [Unknown]
  - Hepatic function abnormal [Recovering/Resolving]
  - Intestinal obstruction [Recovering/Resolving]
  - General physical health deterioration [Unknown]
  - Uveitis [Unknown]
  - Arthralgia [Unknown]
  - Ileal stenosis [Unknown]

NARRATIVE: CASE EVENT DATE: 20210101
